FAERS Safety Report 4880979-4 (Version None)
Quarter: 2005Q4

REPORT INFORMATION
  Report Type: 
  Country: None (occurrence: None)
  Receive Date: 20051223
  Receipt Date: 20050929
  Transmission Date: 20060501
  Serious: No
  Sender: FDA-Public Use
  Company Number: 05P-163-0312527-00

PATIENT
  Age: 79 Year
  Sex: Female
  Weight: 52.1637 kg

DRUGS (5)
  1. HUMIRA [Suspect]
     Indication: RHEUMATOID ARTHRITIS
     Dosage: 40 MG, 1 IN 2 WK, SUBCUTANEOUS
     Route: 058
     Dates: start: 20050401, end: 20050901
  2. METHOTREXATE [Concomitant]
  3. ESTROGENS CONJUGATED [Concomitant]
  4. MEDROXYPROGESTERONE ACETATE [Concomitant]
  5. UNSPECIFIED EYE DROPS [Concomitant]

REACTIONS (8)
  - ANOREXIA [None]
  - BLOOD TEST ABNORMAL [None]
  - COUGH [None]
  - FATIGUE [None]
  - HEADACHE [None]
  - HEART RATE INCREASED [None]
  - INFLUENZA [None]
  - WEIGHT DECREASED [None]
